FAERS Safety Report 8208500-3 (Version None)
Quarter: 2012Q1

REPORT INFORMATION
  Report Type: 
  Country: None (occurrence: None)
  Receive Date: 20120314
  Receipt Date: 20120305
  Transmission Date: 20120608
  Serious: Yes (Other)
  Sender: FDA-Public Use
  Company Number: CA-JNJFOC-20120303055

PATIENT
  Sex: Female
  Weight: 60 kg

DRUGS (4)
  1. REMICADE [Suspect]
     Indication: ANKYLOSING SPONDYLITIS
     Dosage: 22 ND INFUSION
     Route: 042
     Dates: start: 20120110
  2. REMICADE [Suspect]
     Indication: CROHN'S DISEASE
     Route: 042
     Dates: start: 20090101
  3. REMICADE [Suspect]
     Route: 042
     Dates: start: 20090101
  4. REMICADE [Suspect]
     Dosage: 22 ND INFUSION
     Route: 042
     Dates: start: 20120110

REACTIONS (3)
  - UPPER RESPIRATORY TRACT INFECTION [None]
  - PARAESTHESIA [None]
  - HYPOAESTHESIA [None]
